FAERS Safety Report 13862526 (Version 2)
Quarter: 2017Q3

REPORT INFORMATION
  Report Type: Spontaneous
  Country: TR (occurrence: TR)
  Receive Date: 20170814
  Receipt Date: 20170816
  Transmission Date: 20171127
  Serious: Yes (Other)
  Sender: FDA-Public Use
  Company Number: TR-BEH-2017082791

PATIENT
  Age: 38 Week
  Sex: Male

DRUGS (1)
  1. HUMAN IMMUNOGLOBULIN (NC) [Suspect]
     Active Substance: HUMAN IMMUNOGLOBULIN G
     Indication: ABO HAEMOLYTIC DISEASE OF NEWBORN
     Dosage: 1000 MG/KG, UNK
     Route: 042

REACTIONS (2)
  - Supraventricular tachycardia [Recovered/Resolved]
  - Heart rate increased [Recovered/Resolved]
